FAERS Safety Report 16332349 (Version 1)
Quarter: 2019Q2

REPORT INFORMATION
  Report Type: Spontaneous
  Country: US (occurrence: US)
  Receive Date: 20190413
  Receipt Date: 20190413
  Transmission Date: 20190711
  Serious: Yes (Hospitalization)
  Sender: FDA-Public Use
  Company Number: None

PATIENT
  Age: 52 Year
  Sex: Female
  Weight: 82.8 kg

DRUGS (1)
  1. OLAPARIB (AZD2281) [Suspect]
     Active Substance: OLAPARIB
     Dates: end: 20190401

REACTIONS (8)
  - Seizure [None]
  - Computerised tomogram abnormal [None]
  - Platelet count decreased [None]
  - Headache [None]
  - Epistaxis [None]
  - Platelet transfusion [None]
  - CSF test abnormal [None]
  - Computerised tomogram head [None]

NARRATIVE: CASE EVENT DATE: 20190409
